FAERS Safety Report 20700905 (Version 4)
Quarter: 2022Q3

REPORT INFORMATION
  Report Type: Spontaneous
  Country: US (occurrence: US)
  Receive Date: 20220412
  Receipt Date: 20220906
  Transmission Date: 20221027
  Serious: No
  Sender: FDA-Public Use
  Company Number: US-PFIZER INC-202101034137

PATIENT
  Age: 73 Year
  Sex: Female

DRUGS (1)
  1. IBRANCE [Suspect]
     Active Substance: PALBOCICLIB
     Dosage: 100 MG

REACTIONS (6)
  - Product dose omission in error [Unknown]
  - Confusional state [Unknown]
  - Malaise [Unknown]
  - Feeling abnormal [Unknown]
  - Stomatitis [Unknown]
  - Full blood count abnormal [Unknown]
